FAERS Safety Report 19770626 (Version 1)
Quarter: 2021Q3

REPORT INFORMATION
  Report Type: Spontaneous
  Country: US (occurrence: US)
  Receive Date: 20210831
  Receipt Date: 20210831
  Transmission Date: 20211014
  Serious: No
  Sender: FDA-Public Use
  Company Number: None

PATIENT
  Sex: Female

DRUGS (3)
  1. ALARIS PUMP CHANNEL [DEVICE] [Suspect]
     Active Substance: DEVICE
  2. OXYTOCIN. [Concomitant]
     Active Substance: OXYTOCIN
     Dates: start: 20210813, end: 20210813
  3. OXYTOCIN. [Suspect]
     Active Substance: OXYTOCIN

REACTIONS (2)
  - Uterine hyperstimulation [None]
  - Device malfunction [None]

NARRATIVE: CASE EVENT DATE: 20210813
